FAERS Safety Report 5782518-2 (Version None)
Quarter: 2008Q2

REPORT INFORMATION
  Report Type: 
  Country: None (occurrence: None)
  Receive Date: 20080623
  Receipt Date: 20080417
  Transmission Date: 20081010
  Serious: No
  Sender: FDA-Public Use
  Company Number: US-AMGEN-KDL275035

PATIENT
  Age: 65 Year
  Sex: Female

DRUGS (10)
  1. ARANESP [Suspect]
     Indication: RENAL FAILURE CHRONIC
     Route: 058
     Dates: start: 20070101
  2. IRON [Concomitant]
  3. INSULIN [Concomitant]
  4. CLONIDINE [Concomitant]
  5. HYZAAR [Concomitant]
  6. METOPROLOL [Concomitant]
  7. UNSPECIFIED MEDICATION [Concomitant]
     Route: 047
  8. NORVASC [Concomitant]
  9. LASIX [Concomitant]
  10. SPIRONOLACTONE [Concomitant]

REACTIONS (3)
  - ABDOMINAL DISTENSION [None]
  - CONSTIPATION [None]
  - OEDEMA PERIPHERAL [None]
